FAERS Safety Report 9475711 (Version 1)
Quarter: 2013Q3

REPORT INFORMATION
  Report Type: Spontaneous
  Country: US (occurrence: None)
  Receive Date: 20130822
  Receipt Date: 20130822
  Transmission Date: 20140515
  Serious: Yes (Hospitalization)
  Sender: FDA-Public Use
  Company Number: None

PATIENT
  Age: 77 Year
  Sex: Male
  Weight: 86.3 kg

DRUGS (1)
  1. CISPLATIN [Suspect]

REACTIONS (2)
  - Nausea [None]
  - Vomiting [None]
